FAERS Safety Report 5580746-2 (Version None)
Quarter: 2008Q1

REPORT INFORMATION
  Report Type: 
  Country: None (occurrence: None)
  Receive Date: 20080103
  Receipt Date: 20071220
  Transmission Date: 20080703
  Serious: Yes (Death)
  Sender: FDA-Public Use
  Company Number: US-RANBAXY-2007US-07857

PATIENT

DRUGS (1)
  1. ISOTRETINOIN [Suspect]
     Dosage: 40 MG, UNK
     Route: 048

REACTIONS (1)
  - DEATH [None]
